FAERS Safety Report 19815872 (Version 2)
Quarter: 2021Q3

REPORT INFORMATION
  Report Type: Spontaneous
  Country: FR (occurrence: FR)
  Receive Date: 20210909
  Receipt Date: 20210927
  Transmission Date: 20211014
  Serious: Yes (Other)
  Sender: FDA-Public Use
  Company Number: FR-PFIZER INC-202101121485

PATIENT
  Age: 48 Year
  Sex: Female

DRUGS (14)
  1. EPIRUBICIN HCL [Suspect]
     Active Substance: EPIRUBICIN HYDROCHLORIDE
     Indication: BREAST CANCER FEMALE
     Dosage: UNK
     Dates: start: 20210202
  2. PACLITAXEL. [Suspect]
     Active Substance: PACLITAXEL
     Dosage: 100MG/16.7MLCURE 1 DAY 1
     Dates: start: 20210525
  3. PERTUZUMAB. [Suspect]
     Active Substance: PERTUZUMAB
     Dosage: UNK
     Dates: start: 20210525
  4. PACLITAXEL. [Suspect]
     Active Substance: PACLITAXEL
     Dosage: 100MG/16.7ML
     Dates: start: 20210202
  5. PACLITAXEL. [Suspect]
     Active Substance: PACLITAXEL
     Dosage: 138 MG, 100MG/16.7MLCURE 3 DAY 8
     Dates: start: 20210713
  6. TRASTUZUMAB. [Suspect]
     Active Substance: TRASTUZUMAB
     Indication: BREAST CANCER FEMALE
     Dosage: 378MG, CURE 3 DAY 1
     Dates: start: 20210706
  7. TRASTUZUMAB. [Suspect]
     Active Substance: TRASTUZUMAB
     Dosage: UNK
     Dates: start: 20210525
  8. PERTUZUMAB. [Suspect]
     Active Substance: PERTUZUMAB
     Indication: BREAST CANCER FEMALE
     Dosage: UNK
     Dates: start: 20210727
  9. CYTARABINE. [Suspect]
     Active Substance: CYTARABINE
     Indication: BREAST CANCER FEMALE
     Dosage: UNK
     Dates: start: 20210202
  10. PACLITAXEL. [Suspect]
     Active Substance: PACLITAXEL
     Dosage: 138 MG, 100MG/16.7MLCURE 3 DAY 1
     Dates: start: 20210706
  11. TRASTUZUMAB. [Suspect]
     Active Substance: TRASTUZUMAB
     Dosage: UNK
     Dates: start: 20210727
  12. PERTUZUMAB. [Suspect]
     Active Substance: PERTUZUMAB
     Dosage: 420 MG, CURE 3 DAY 1
     Dates: start: 20210706
  13. PACLITAXEL. [Suspect]
     Active Substance: PACLITAXEL
     Dosage: 98.4 MG, 100MG/16.7MLCURE 3 DAY 15
     Dates: start: 20210720, end: 20210827
  14. PACLITAXEL. [Suspect]
     Active Substance: PACLITAXEL
     Indication: BREAST CANCER FEMALE
     Dosage: 138 MG, 100MG/16.7ML CURE 2 DAY 15
     Dates: start: 20210622

REACTIONS (10)
  - Epistaxis [Unknown]
  - Skin abrasion [Unknown]
  - Oesophagitis [Unknown]
  - Diarrhoea [Unknown]
  - Off label use [Unknown]
  - Oedema [Unknown]
  - Paraesthesia [Unknown]
  - Conjunctivitis [Unknown]
  - Neuropathy peripheral [Unknown]
  - Constipation [Unknown]

NARRATIVE: CASE EVENT DATE: 20210202
